FAERS Safety Report 21667690 (Version 2)
Quarter: 2022Q4

REPORT INFORMATION
  Report Type: Other
  Country: VN (occurrence: None)
  Receive Date: 20221201
  Receipt Date: 20221206
  Transmission Date: 20230113
  Serious: No
  Sender: FDA-Public Use
  Company Number: VN-ROCHE-3229727

PATIENT
  Age: 60 Year
  Sex: Male

DRUGS (9)
  1. RITUXIMAB [Suspect]
     Active Substance: RITUXIMAB
     Indication: Mantle cell lymphoma stage IV
     Route: 065
  2. CYCLOPHOSPHAMIDE [Concomitant]
     Active Substance: CYCLOPHOSPHAMIDE
     Indication: Mantle cell lymphoma stage IV
  3. DOXORUBICIN [Concomitant]
     Active Substance: DOXORUBICIN
     Indication: Mantle cell lymphoma stage IV
  4. VINCRISTINE [Concomitant]
     Active Substance: VINCRISTINE
     Indication: Mantle cell lymphoma stage IV
  5. PREDNISOLONE [Concomitant]
     Active Substance: PREDNISOLONE
     Indication: Mantle cell lymphoma stage IV
  6. BENDAMUSTINE [Concomitant]
     Active Substance: BENDAMUSTINE
     Indication: Autologous haematopoietic stem cell transplant
     Dosage: DAY-7 TO DAY-6
  7. ETOPOSIDE [Concomitant]
     Active Substance: ETOPOSIDE
     Indication: Autologous haematopoietic stem cell transplant
     Dosage: D-5 TO D-2
  8. CYTARABINE [Concomitant]
     Active Substance: CYTARABINE
     Indication: Autologous haematopoietic stem cell transplant
     Dosage: D-5 TO D-2
  9. MELPHALAN [Concomitant]
     Active Substance: MELPHALAN
     Indication: Autologous haematopoietic stem cell transplant

REACTIONS (2)
  - Off label use [Unknown]
  - No adverse event [Unknown]
